FAERS Safety Report 8461747-3 (Version None)
Quarter: 2012Q2

REPORT INFORMATION
  Report Type: 
  Country: None (occurrence: None)
  Receive Date: 20120625
  Receipt Date: 20120613
  Transmission Date: 20120825
  Serious: Yes (Hospitalization)
  Sender: FDA-Public Use
  Company Number: FR-JNJFOC-20120516022

PATIENT
  Sex: Female

DRUGS (10)
  1. ATARAX [Concomitant]
     Indication: AGITATION
     Route: 065
     Dates: start: 20120405
  2. TRIMEPRAZINE TARTRATE [Concomitant]
     Indication: INSOMNIA
     Route: 030
     Dates: start: 20120403, end: 20120403
  3. RISPERDAL CONSTA [Suspect]
     Route: 030
     Dates: start: 20120403
  4. RISPERDAL [Suspect]
     Indication: MANIA
     Route: 048
     Dates: start: 20120403, end: 20120404
  5. TERCIAN [Concomitant]
     Indication: AGITATION
     Route: 065
     Dates: start: 20120403, end: 20120404
  6. RISPERDAL [Suspect]
     Route: 048
     Dates: start: 20120404, end: 20120426
  7. RISPERDAL CONSTA [Suspect]
     Indication: MANIA
     Route: 030
     Dates: start: 20120417
  8. LITHIUM CARBONATE [Concomitant]
     Indication: BIPOLAR DISORDER
     Route: 065
     Dates: start: 20120403
  9. LORAZEPAM [Concomitant]
     Indication: AGITATION
     Route: 065
     Dates: start: 20120405
  10. POTASSIUM CHLORIDE [Concomitant]
     Indication: HYPOKALAEMIA
     Route: 048
     Dates: start: 20120404

REACTIONS (2)
  - CARDIAC DISORDER [None]
  - MYOCARDIAL INFARCTION [None]
